FAERS Safety Report 18104968 (Version 3)
Quarter: 2020Q3

REPORT INFORMATION
  Report Type: Spontaneous
  Country: CA (occurrence: CA)
  Receive Date: 20200804
  Receipt Date: 20200930
  Transmission Date: 20201103
  Serious: Yes (Hospitalization)
  Sender: FDA-Public Use
  Company Number: CA-CELLTRION INC.-2020CA024852

PATIENT

DRUGS (4)
  1. PREDNISONE. [Concomitant]
     Active Substance: PREDNISONE
     Dosage: UNK
     Route: 065
  2. INFLECTRA [Suspect]
     Active Substance: INFLIXIMAB-DYYB
     Indication: COLITIS ULCERATIVE
     Dosage: UNKNOWN DOSE
     Route: 042
     Dates: start: 2020, end: 2020
  3. DILANTIN [Suspect]
     Active Substance: PHENYTOIN
     Dosage: UNK
  4. SALOFALK [MESALAZINE] [Concomitant]
     Active Substance: MESALAMINE
     Dosage: DOSE UNKNOWN
     Route: 065
     Dates: start: 20200625

REACTIONS (7)
  - Fall [Unknown]
  - Toxicity to various agents [Unknown]
  - Vomiting [Unknown]
  - Malaise [Unknown]
  - Nausea [Unknown]
  - Drug level above therapeutic [Recovered/Resolved]
  - Balance disorder [Unknown]

NARRATIVE: CASE EVENT DATE: 2020
